FAERS Safety Report 5323132-2 (Version None)
Quarter: 2007Q1

REPORT INFORMATION
  Report Type: 
  Country: None (occurrence: None)
  Receive Date: 20070220
  Receipt Date: 20061121
  Transmission Date: 20070707
  Serious: No
  Sender: FDA-Public Use
  Company Number: WAES 0611USA06054

PATIENT
  Age: 61 Year
  Sex: Male

DRUGS (4)
  1. JANUVIA [Suspect]
     Indication: BLOOD GLUCOSE
     Dosage: 100 MG/DAILY/PO
     Route: 048
     Dates: start: 20061101
  2. AVANDAMET [Concomitant]
  3. NORVASC [Concomitant]
  4. THERAPY UNSPECIFIED [Concomitant]

REACTIONS (1)
  - NASOPHARYNGITIS [None]
